FAERS Safety Report 21781228 (Version 1)
Quarter: 2022Q4

REPORT INFORMATION
  Report Type: Spontaneous
  Country: BE (occurrence: BE)
  Receive Date: 20221227
  Receipt Date: 20221227
  Transmission Date: 20230113
  Serious: Yes (Other)
  Sender: FDA-Public Use
  Company Number: None

PATIENT
  Age: 52 Year
  Sex: Female
  Weight: 75 kg

DRUGS (3)
  1. COMBIVENT [Suspect]
     Active Substance: ALBUTEROL SULFATE\IPRATROPIUM BROMIDE
     Indication: Bronchitis
     Dosage: TWICE PER DAY, GREAT NERVOUSNESS AND HOT FLASHES WITH A SCARLET FACE
     Route: 055
  2. CIPROFLOXACIN HYDROCHLORIDE [Suspect]
     Active Substance: CIPROFLOXACIN HYDROCHLORIDE
     Indication: Respiratory tract infection
     Dosage: AFTER THE FIRST TAKE, I DIDN^T FEEL GOOD AS IF I WASN^T TOUCHING THE GROUND ANYMORE AND I STARTED NO
     Route: 048
  3. BECLOMETHASONE DIPROPIONATE\FORMOTEROL FUMARATE [Suspect]
     Active Substance: BECLOMETHASONE DIPROPIONATE\FORMOTEROL FUMARATE
     Indication: Bronchitis
     Route: 055

REACTIONS (6)
  - Nervousness [Recovered/Resolved]
  - Pharyngeal swelling [Recovered/Resolved]
  - Malaise [Recovered/Resolved]
  - Flushing [Recovered/Resolved]
  - Hot flush [Recovered/Resolved]
  - Choking [Recovered/Resolved]
